FAERS Safety Report 5289657-3 (Version None)
Quarter: 2007Q2

REPORT INFORMATION
  Report Type: 
  Country: None (occurrence: None)
  Receive Date: 20070406
  Receipt Date: 20070328
  Transmission Date: 20071010
  Serious: Yes (Hospitalization, Disabling, Other)
  Sender: FDA-Public Use
  Company Number: 2007GB00651

PATIENT
  Age: 15 Year
  Sex: Female
  Weight: 55 kg

DRUGS (1)
  1. QUETIAPINE FUMARATE [Suspect]
     Indication: PSYCHOTIC DISORDER
     Route: 048
     Dates: start: 20060501

REACTIONS (1)
  - OVARIAN CYST [None]
